FAERS Safety Report 18650185 (Version 2)
Quarter: 2020Q4

REPORT INFORMATION
  Report Type: Report from Study
  Country: US (occurrence: US)
  Receive Date: 20201222
  Receipt Date: 20201229
  Transmission Date: 20210114
  Serious: No
  Sender: FDA-Public Use
  Company Number: NVSC2020US329198

PATIENT
  Sex: Female

DRUGS (2)
  1. COSENTYX [Suspect]
     Active Substance: SECUKINUMAB
     Indication: PRODUCT USED FOR UNKNOWN INDICATION
     Dosage: 300 MG, QW
     Route: 058
  2. COSENTYX [Suspect]
     Active Substance: SECUKINUMAB
     Dosage: 300 MG, QW
     Route: 058

REACTIONS (8)
  - Therapeutic response unexpected [Unknown]
  - Condition aggravated [Unknown]
  - Device operational issue [Unknown]
  - Pain [Unknown]
  - Injection site pain [Unknown]
  - Dyskinesia [Unknown]
  - Injection site bruising [Unknown]
  - Therapeutic product effect decreased [Unknown]
